FAERS Safety Report 4302967-9 (Version None)
Quarter: 2004Q1

REPORT INFORMATION
  Report Type: 
  Country: None (occurrence: None)
  Receive Date: 20040223
  Receipt Date: 20040223
  Transmission Date: 20041129
  Serious: Yes (Disabling)
  Sender: FDA-Public Use
  Company Number: None

PATIENT
  Age: 20 Year
  Sex: Female
  Weight: 63.5036 kg

DRUGS (1)
  1. ACCUTANE [Suspect]
     Dosage: 40 MG BID ORAL
     Route: 048
     Dates: start: 19890101, end: 19890701

REACTIONS (5)
  - ANORECTAL DISORDER [None]
  - FATIGUE [None]
  - HAEMORRHAGE [None]
  - KERATOCONJUNCTIVITIS SICCA [None]
  - PAIN OF SKIN [None]
